FAERS Safety Report 7756866-0 (Version None)
Quarter: 2011Q3

REPORT INFORMATION
  Report Type: 
  Country: None (occurrence: None)
  Receive Date: 20110916
  Receipt Date: 20110915
  Transmission Date: 20111222
  Serious: Yes (Other)
  Sender: FDA-Public Use
  Company Number: US-BAYER-2011-086562

PATIENT
  Age: 32 Year
  Sex: Female

DRUGS (1)
  1. BETASERON [Suspect]
     Dosage: UNKNOWN

REACTIONS (1)
  - HOSPITALISATION [None]
